FAERS Safety Report 10017318 (Version 2)
Quarter: 2014Q1

REPORT INFORMATION
  Report Type: Spontaneous
  Country: JP (occurrence: JP)
  Receive Date: 20140318
  Receipt Date: 20140328
  Transmission Date: 20141002
  Serious: Yes (Hospitalization)
  Sender: FDA-Public Use
  Company Number: JP-JNJFOC-20140307633

PATIENT
  Age: 86 Year
  Sex: Male
  Weight: 65 kg

DRUGS (8)
  1. XARELTO [Suspect]
     Indication: THROMBOSIS PROPHYLAXIS
     Route: 048
     Dates: start: 20140306
  2. XARELTO [Suspect]
     Indication: THROMBOSIS PROPHYLAXIS
     Route: 048
     Dates: start: 20130921, end: 2014
  3. CRESTOR [Concomitant]
     Indication: HYPERLIPIDAEMIA
     Route: 048
     Dates: start: 20110825
  4. DIGOXIN [Concomitant]
     Indication: TACHYCARDIA
     Route: 048
     Dates: start: 20110825
  5. DIGOXIN [Concomitant]
     Indication: ATRIAL FIBRILLATION
     Route: 048
     Dates: start: 20110825
  6. TAKEPRON [Concomitant]
     Indication: GASTROOESOPHAGEAL REFLUX DISEASE
     Route: 048
     Dates: start: 20110825
  7. MAINTATE [Concomitant]
     Indication: TACHYCARDIA
     Route: 048
     Dates: start: 20111101
  8. MAINTATE [Concomitant]
     Indication: ATRIAL FIBRILLATION
     Route: 048
     Dates: start: 20111101

REACTIONS (1)
  - Cerebral infarction [Recovered/Resolved]
